FAERS Safety Report 5321009-X (Version None)
Quarter: 2007Q2

REPORT INFORMATION
  Report Type: 
  Country: None (occurrence: None)
  Receive Date: 20070209
  Receipt Date: 20060718
  Transmission Date: 20071010
  Serious: Yes (Other)
  Sender: FDA-Public Use
  Company Number: CTI_0899_2006

PATIENT
  Age: 72 Year
  Sex: Female
  Weight: 63.5036 kg

DRUGS (18)
  1. ZYFLO [Suspect]
     Indication: ASTHMA
     Dosage: 600 MG QID PO
     Route: 048
     Dates: start: 20060621, end: 20060712
  2. LIPITOR [Concomitant]
  3. NAPROXEN [Concomitant]
  4. BONIVA [Concomitant]
  5. VICODIN [Concomitant]
  6. ACIPHEX [Concomitant]
  7. SYNTHROID [Concomitant]
  8. MICARDIS [Concomitant]
  9. QVAR 40 [Concomitant]
  10. FORADIL [Concomitant]
  11. DUONEB [Concomitant]
  12. CLARINEX [Concomitant]
  13. FLONASE [Concomitant]
  14. ASTELIN [Concomitant]
  15. CLIMARA [Concomitant]
  16. IMITREX [Concomitant]
  17. MULTI-VITAMIN [Concomitant]
  18. IMMUNOTHERAPY FOR ALLERGIES [Concomitant]

REACTIONS (1)
  - LIVER FUNCTION TEST ABNORMAL [None]
